FAERS Safety Report 21292801 (Version 1)
Quarter: 2022Q3

REPORT INFORMATION
  Report Type: Spontaneous
  Country: CN (occurrence: CN)
  Receive Date: 20220905
  Receipt Date: 20220905
  Transmission Date: 20221027
  Serious: Yes (Hospitalization)
  Sender: FDA-Public Use
  Company Number: CN-NOVOPROD-952743

PATIENT
  Age: 28 Year
  Sex: Female
  Weight: 41 kg

DRUGS (10)
  1. NOVORAPID [Suspect]
     Active Substance: INSULIN ASPART
     Indication: Gestational diabetes
     Dosage: UNK
     Route: 058
  2. NOVORAPID [Suspect]
     Active Substance: INSULIN ASPART
     Indication: Fulminant type 1 diabetes mellitus
     Dosage: 20 IU, QD (10 U IN THE MORNING, 6 U AT NOON AND 4 U, BEFORE THREE MEALS)
     Route: 058
  3. LEVEMIR [Suspect]
     Active Substance: INSULIN DETEMIR
     Indication: Fulminant type 1 diabetes mellitus
     Dosage: 8-12 U BEFORE SLEEP
     Route: 058
  4. LEVEMIR [Suspect]
     Active Substance: INSULIN DETEMIR
     Indication: Gestational diabetes
     Dosage: 17 IU, QD (7 U IN THE MORNING AND 10 U IN THE EVENING)
     Route: 058
  5. INSULIN GLULISINE [Suspect]
     Active Substance: INSULIN GLULISINE
     Indication: Gestational diabetes
     Dosage: 22 IU, QD (8 U IN THE MORNING, 7 U AT NOON AND 7 U IN THE EVENING)
     Route: 058
  6. INSULIN GLULISINE [Suspect]
     Active Substance: INSULIN GLULISINE
     Indication: Fulminant type 1 diabetes mellitus
     Dosage: 22 IU, QD (8 U IN THE MORNING, 8 U AT NOON AND 6 U IN THE EVENING)
     Route: 058
  7. INSULIN GLULISINE [Suspect]
     Active Substance: INSULIN GLULISINE
     Dosage: 23 IU, QD (9 U IN THE MORNING, 7 U AT NOON AND 7 U IN THE EVENING, BEFORE 3 MEALS)
     Route: 058
  8. INSULIN GLULISINE [Suspect]
     Active Substance: INSULIN GLULISINE
     Dosage: BASAL DOSE OF INSULIN GLULISINE WAS 11.6 U/D  AND LARGE DOSE WAS 7 U, BEFORE THREE MEALS
     Route: 058
  9. INSULIN GLARGINE [Suspect]
     Active Substance: INSULIN GLARGINE
     Indication: Fulminant type 1 diabetes mellitus
     Dosage: 18 IU, QD (BEFORE SLEEP)
     Route: 058
  10. INSULIN GLARGINE [Suspect]
     Active Substance: INSULIN GLARGINE
     Indication: Gestational diabetes
     Dosage: 12 IU, QD (IN THE EVENING)
     Route: 058

REACTIONS (8)
  - Anti-insulin antibody positive [Unknown]
  - Drug hypersensitivity [Unknown]
  - Pyrexia [Unknown]
  - Premature delivery [Unknown]
  - Blood glucose increased [Unknown]
  - Injection site induration [Unknown]
  - Injection site erythema [Unknown]
  - Maternal exposure during pregnancy [Recovered/Resolved]
